FAERS Safety Report 8813917 (Version 2)
Quarter: 2015Q3

REPORT INFORMATION
  Report Type: Report from Study
  Country: US (occurrence: US)
  Receive Date: 20120928
  Receipt Date: 20150702
  Transmission Date: 20151125
  Serious: Yes (Death)
  Sender: FDA-Public Use
  Company Number: US-ROCHE-1129785

PATIENT
  Sex: Female

DRUGS (21)
  1. ZOMETA [Concomitant]
     Active Substance: ZOLEDRONIC ACID
     Route: 065
     Dates: start: 20070906
  2. PROCRIT [Concomitant]
     Active Substance: ERYTHROPOIETIN
     Route: 065
     Dates: start: 20070405
  3. NAVELBINE [Concomitant]
     Active Substance: VINORELBINE TARTRATE
     Route: 065
     Dates: start: 20070308
  4. CRESTOR [Concomitant]
     Active Substance: ROSUVASTATIN CALCIUM
     Route: 048
     Dates: start: 20080306
  5. GEMZAR [Concomitant]
     Active Substance: GEMCITABINE HYDROCHLORIDE
  6. XELODA [Suspect]
     Active Substance: CAPECITABINE
     Indication: PRODUCT USED FOR UNKNOWN INDICATION
     Dosage: TAKE WITH IN A MINUTE AFTER MEAL 2 TABLETS EACH AM AND FOR 14 DAYS THEN STOP FOR 7 DAYS
     Route: 048
     Dates: start: 20080605, end: 20080918
  7. ABRAXANE [Concomitant]
     Active Substance: PACLITAXEL
     Route: 065
     Dates: start: 20080228
  8. DECADRON [Concomitant]
     Active Substance: DEXAMETHASONE
     Route: 065
  9. HERCEPTIN [Suspect]
     Active Substance: TRASTUZUMAB
     Indication: BREAST CANCER FEMALE
     Route: 042
     Dates: start: 20070308, end: 20080221
  10. CATHFLO ACTIVASE [Concomitant]
     Active Substance: ALTEPLASE
     Route: 065
     Dates: start: 20071004, end: 20071004
  11. DARVOCET-N 100 [Concomitant]
     Active Substance: ACETAMINOPHEN\PROPOXYPHENE NAPSYLATE
     Route: 048
     Dates: start: 20080605
  12. ALOXI [Concomitant]
     Active Substance: PALONOSETRON HYDROCHLORIDE
     Route: 065
  13. TAXOTERE [Concomitant]
     Active Substance: DOCETAXEL
  14. TAXOL [Concomitant]
     Active Substance: PACLITAXEL
     Route: 065
     Dates: start: 20070906
  15. TAGAMET [Concomitant]
     Active Substance: CIMETIDINE
     Route: 065
  16. ATENOLOL. [Concomitant]
     Active Substance: ATENOLOL
     Route: 065
     Dates: start: 20070308
  17. DEXAMETHASONE. [Concomitant]
     Active Substance: DEXAMETHASONE
     Route: 048
     Dates: start: 20070906
  18. CARBOPLATIN. [Concomitant]
     Active Substance: CARBOPLATIN
     Route: 065
  19. COMPAZINE [Concomitant]
     Active Substance: PROCHLORPERAZINE MALEATE
     Route: 065
     Dates: start: 20070308
  20. BENADRYL [Concomitant]
     Active Substance: DIPHENHYDRAMINE HYDROCHLORIDE
     Route: 065
  21. ASPIRIN. [Concomitant]
     Active Substance: ASPIRIN
     Route: 065
     Dates: start: 20070308

REACTIONS (15)
  - Neuropathy peripheral [Unknown]
  - Fatigue [Unknown]
  - Chest discomfort [Recovering/Resolving]
  - Dyspnoea [Recovering/Resolving]
  - Chest pain [Recovering/Resolving]
  - Off label use [Unknown]
  - Gingival pain [Unknown]
  - Death [Fatal]
  - Oedema peripheral [Unknown]
  - Pleural effusion [Unknown]
  - Asthenia [Unknown]
  - Nausea [Unknown]
  - Peripheral swelling [Unknown]
  - Musculoskeletal discomfort [Unknown]
  - Disease progression [Unknown]
